FAERS Safety Report 6517976-9 (Version None)
Quarter: 2009Q4

REPORT INFORMATION
  Report Type: 
  Country: None (occurrence: None)
  Receive Date: 20091224
  Receipt Date: 20091217
  Transmission Date: 20100525
  Serious: Yes (Hospitalization, Disabling, Other)
  Sender: FDA-Public Use
  Company Number: GB-JNJFOC-20090601308

PATIENT
  Age: 16 Year
  Sex: Male
  Weight: 58.6 kg

DRUGS (2)
  1. CONCERTA [Suspect]
     Indication: OPPOSITIONAL DEFIANT DISORDER
     Route: 048
  2. CONCERTA [Suspect]
     Indication: ATTENTION DEFICIT/HYPERACTIVITY DISORDER
     Route: 048

REACTIONS (4)
  - ARRHYTHMIA [None]
  - CHEST PAIN [None]
  - GASTROOESOPHAGEAL REFLUX DISEASE [None]
  - TACHYCARDIA [None]
